FAERS Safety Report 5219024-X (Version None)
Quarter: 2007Q1

REPORT INFORMATION
  Report Type: 
  Country: None (occurrence: None)
  Receive Date: 20070125
  Receipt Date: 20070117
  Transmission Date: 20070707
  Serious: Yes (Life-Threatening, Hospitalization, Other)
  Sender: FDA-Public Use
  Company Number: US-ELI_LILLY_AND_COMPANY-US200701003147

PATIENT
  Age: 81 Year
  Sex: Male

DRUGS (1)
  1. HUMALOG MIX 75/25 [Suspect]
     Indication: DIABETES MELLITUS
     Dosage: 75 UNITS IN AM, 60 UNITS IN PM
     Dates: start: 20040101, end: 20060523

REACTIONS (9)
  - ASPIRATION [None]
  - BRONCHOSCOPY [None]
  - CARDIAC ARREST [None]
  - GASTROINTESTINAL TUBE INSERTION [None]
  - GENERAL PHYSICAL HEALTH DETERIORATION [None]
  - INTUBATION [None]
  - PNEUMONIA [None]
  - THROMBOSIS [None]
  - TRACHEOSTOMY [None]
